FAERS Safety Report 23529257 (Version 1)
Quarter: 2024Q1

REPORT INFORMATION
  Report Type: Spontaneous
  Country: US (occurrence: US)
  Receive Date: 20240216
  Receipt Date: 20240216
  Transmission Date: 20240410
  Serious: Yes (Other)
  Sender: FDA-Public Use
  Company Number: US-BRISTOL-MYERS SQUIBB COMPANY-2024-022679

PATIENT
  Age: 67 Year
  Sex: Male

DRUGS (1)
  1. LENALIDOMIDE [Suspect]
     Active Substance: LENALIDOMIDE
     Indication: Plasma cell myeloma in remission
     Dosage: TAKE 1 WHOLE CAPSULE BY MOUTH WITH WATER ONCE DAILY ON DAYS 1-21 OF 28 DAY CYCLE. DO NOT BREAK,CHEW
     Route: 048

REACTIONS (4)
  - Sinusitis [Unknown]
  - Neuropathy peripheral [Unknown]
  - Blood potassium decreased [Unknown]
  - Multiple fractures [Unknown]
